FAERS Safety Report 13118551 (Version 1)
Quarter: 2017Q1

REPORT INFORMATION
  Report Type: Spontaneous
  Country: US (occurrence: US)
  Receive Date: 20170116
  Receipt Date: 20170116
  Transmission Date: 20170428
  Serious: No
  Sender: FDA-Public Use
  Company Number: US-ASTRAZENECA-2017SE03649

PATIENT
  Sex: Female

DRUGS (1)
  1. SYMBICORT [Suspect]
     Active Substance: BUDESONIDE\FORMOTEROL FUMARATE DIHYDRATE
     Dosage: 160/4.5 MCG
     Route: 055
     Dates: start: 201612

REACTIONS (4)
  - Intentional device misuse [Unknown]
  - Malaise [Unknown]
  - Device issue [Unknown]
  - Somnolence [Unknown]

NARRATIVE: CASE EVENT DATE: 2016
